FAERS Safety Report 6840439-8 (Version None)
Quarter: 2010Q3

REPORT INFORMATION
  Report Type: 
  Country: None (occurrence: None)
  Receive Date: 20100714
  Receipt Date: 20100705
  Transmission Date: 20110219
  Serious: Yes (Hospitalization, Disabling)
  Sender: FDA-Public Use
  Company Number: US-B.I. PHARMACEUTICALS,INC./RIDGEFIELD-2010-BP-07584BP

PATIENT
  Sex: Male

DRUGS (3)
  1. MIRAPEX [Suspect]
     Indication: PARKINSON'S DISEASE
     Dosage: 12 MG
     Route: 048
  2. PRAMIPEXOLE DIHYDROCHLORIDE [Suspect]
     Indication: PARKINSON'S DISEASE
     Dosage: 6 MG
     Route: 048
     Dates: start: 20100401, end: 20100410
  3. SINEMET [Concomitant]
     Indication: PARKINSON'S DISEASE

REACTIONS (2)
  - GAIT DISTURBANCE [None]
  - MYOCARDIAL INFARCTION [None]
